FAERS Safety Report 19043885 (Version 2)
Quarter: 2021Q2

REPORT INFORMATION
  Report Type: Other
  Country: US (occurrence: US)
  Receive Date: 20210323
  Receipt Date: 20210603
  Transmission Date: 20210717
  Serious: Yes (Hospitalization)
  Sender: FDA-Public Use
  Company Number: US-ROCHE-2788938

PATIENT
  Age: 65 Year
  Sex: Female

DRUGS (1)
  1. OCREVUS [Suspect]
     Active Substance: OCRELIZUMAB
     Indication: MULTIPLE SCLEROSIS
     Dosage: DATE OF TREATMENT: 16/AUG/2019, 17/FEB/2020
     Route: 042
     Dates: start: 20190802, end: 20200821

REACTIONS (6)
  - COVID-19 [Unknown]
  - Myalgia [Unknown]
  - Amnesia [Recovered/Resolved]
  - Fall [Unknown]
  - Pyrexia [Unknown]
  - Asthenia [Recovered/Resolved]

NARRATIVE: CASE EVENT DATE: 2020
